FAERS Safety Report 6790428-7 (Version None)
Quarter: 2010Q2

REPORT INFORMATION
  Report Type: 
  Country: None (occurrence: None)
  Receive Date: 20100624
  Receipt Date: 20100611
  Transmission Date: 20101027
  Serious: Yes (Death, Hospitalization)
  Sender: FDA-Public Use
  Company Number: DE-ROCHE-679609

PATIENT
  Sex: Female
  Weight: 78 kg

DRUGS (3)
  1. CAPECITABINE [Suspect]
     Route: 048
     Dates: start: 20091120, end: 20091217
  2. CAPECITABINE [Suspect]
     Route: 048
     Dates: end: 20100531
  3. TYVERB [Suspect]
     Route: 048
     Dates: start: 20091123, end: 20091221

REACTIONS (5)
  - DYSPNOEA [None]
  - GENERAL PHYSICAL HEALTH DETERIORATION [None]
  - MALIGNANT NEOPLASM PROGRESSION [None]
  - MENTAL DISORDER [None]
  - PNEUMOCYSTIS JIROVECI PNEUMONIA [None]
